FAERS Safety Report 22763241 (Version 4)
Quarter: 2025Q4

REPORT INFORMATION
  Report Type: Spontaneous
  Country: EU (occurrence: EU)
  Receive Date: 20230729
  Receipt Date: 20251212
  Transmission Date: 20260118
  Serious: Yes (Other)
  Sender: NOVARTIS
  Company Number: EU-002147023-NVSC2022DE281068

PATIENT
  Sex: Male
  Weight: 70 kg

DRUGS (116)
  1. TAFINLAR [Suspect]
     Active Substance: DABRAFENIB MESYLATE
     Indication: Malignant melanoma
     Dosage: 75 MG, BID (2 X 75 MG) (1-0-1)
     Route: 065
     Dates: start: 20220913, end: 20220925
  2. TAFINLAR [Suspect]
     Active Substance: DABRAFENIB MESYLATE
     Indication: Metastases to lung
     Dosage: 75 MG, BID (2 X 75 MG) (1-0-1)
     Route: 065
     Dates: start: 20221011, end: 20221027
  3. TAFINLAR [Suspect]
     Active Substance: DABRAFENIB MESYLATE
     Dosage: 75 MG, BID (2 X 75 MG) (1-0-1)
     Route: 065
     Dates: start: 20221105, end: 20221213
  4. TAFINLAR [Suspect]
     Active Substance: DABRAFENIB MESYLATE
     Dosage: 75 MG, BID (2 X 75 MG) (1-0-1)
     Route: 065
     Dates: start: 20221228, end: 20230111
  5. TAFINLAR [Suspect]
     Active Substance: DABRAFENIB MESYLATE
     Dosage: 100 MG, BID (1-0-1)
     Route: 065
     Dates: start: 20230127, end: 20230310
  6. TAFINLAR [Suspect]
     Active Substance: DABRAFENIB MESYLATE
     Dosage: 50 MG, BID (2 X 50 MG) (1-0-1)
     Route: 065
     Dates: start: 20230321, end: 20230403
  7. TAFINLAR [Suspect]
     Active Substance: DABRAFENIB MESYLATE
     Dosage: 50 MG, BID (2 X 50 MG) (1-0-1)
     Route: 065
     Dates: start: 20230414, end: 20230424
  8. TAFINLAR [Suspect]
     Active Substance: DABRAFENIB MESYLATE
     Dosage: 50 MG, BID (2 X 50 MG) (1-0-1)
     Route: 065
     Dates: start: 20230506, end: 20230517
  9. TAFINLAR [Suspect]
     Active Substance: DABRAFENIB MESYLATE
     Dosage: 50 MG, BID (2 X 50 MG) (1-0-1)
     Route: 065
     Dates: start: 20230522, end: 20230605
  10. TAFINLAR [Suspect]
     Active Substance: DABRAFENIB MESYLATE
     Dosage: 50 MG, BID (2 X 50 MG) (1-0-1)
     Route: 065
     Dates: start: 20230613, end: 20230628
  11. TAFINLAR [Suspect]
     Active Substance: DABRAFENIB MESYLATE
     Dosage: 50 MG, BID (2 X 50 MG) (1-0-1)
     Route: 065
     Dates: start: 20230708, end: 20230719
  12. TAFINLAR [Suspect]
     Active Substance: DABRAFENIB MESYLATE
     Dosage: 75 MG (2-0-0)
     Route: 065
     Dates: start: 20221214, end: 20221214
  13. TAFINLAR [Suspect]
     Active Substance: DABRAFENIB MESYLATE
     Dosage: 75 MG (2-0-2)
     Route: 065
     Dates: start: 20221228, end: 20230113
  14. TAFINLAR [Suspect]
     Active Substance: DABRAFENIB MESYLATE
     Dosage: 100 MG (IN THE MORNING AND EVENING (2-0-2))
     Route: 065
     Dates: start: 20230321, end: 20230403
  15. TAFINLAR [Suspect]
     Active Substance: DABRAFENIB MESYLATE
     Dosage: 100 MG (IN THE EVENING (0-0-2))
     Route: 065
     Dates: start: 20230413, end: 20230413
  16. TAFINLAR [Suspect]
     Active Substance: DABRAFENIB MESYLATE
     Dosage: 100 MG (IN THE MORNING AND EVENING (2-0-2)
     Route: 065
     Dates: start: 20230414, end: 20230424
  17. TAFINLAR [Suspect]
     Active Substance: DABRAFENIB MESYLATE
     Dosage: 100 MG (IN THE MORNING AND EVENING (2-0-2))
     Route: 065
     Dates: start: 20250506, end: 20250517
  18. TAFINLAR [Suspect]
     Active Substance: DABRAFENIB MESYLATE
     Dosage: 100 MG (IN THE MORNING AND EVENING (2-0-2))
     Route: 065
     Dates: start: 20230522, end: 20250605
  19. TAFINLAR [Suspect]
     Active Substance: DABRAFENIB MESYLATE
     Dosage: 100 MG (IN THE MORNING AND EVENING (2-0-2)
     Route: 065
     Dates: start: 20220613, end: 20230628
  20. TAFINLAR [Suspect]
     Active Substance: DABRAFENIB MESYLATE
     Dosage: 100 MG (IN THE MORNING AND EVENING (2-0-2))
     Route: 065
     Dates: start: 20230708, end: 20230719
  21. TAFINLAR [Suspect]
     Active Substance: DABRAFENIB MESYLATE
     Dosage: UNK 1-0-2
     Route: 065
     Dates: start: 20230730, end: 20230903
  22. TAFINLAR [Suspect]
     Active Substance: DABRAFENIB MESYLATE
     Dosage: UNK, 1-0-2
     Route: 065
     Dates: start: 20230917, end: 20230928
  23. TAFINLAR [Suspect]
     Active Substance: DABRAFENIB MESYLATE
     Dosage: UNK (1-0-2)
     Route: 065
     Dates: start: 20231005, end: 20231024
  24. TAFINLAR [Suspect]
     Active Substance: DABRAFENIB MESYLATE
     Dosage: UNK , 1-0-2
     Route: 065
     Dates: start: 20231030, end: 20231129
  25. TAFINLAR [Suspect]
     Active Substance: DABRAFENIB MESYLATE
     Dosage: UNK, 1-0-2
     Route: 065
     Dates: start: 20231210, end: 20240124
  26. TAFINLAR [Suspect]
     Active Substance: DABRAFENIB MESYLATE
     Dosage: UNK, 1-0-2
     Route: 065
     Dates: start: 20240130, end: 20240219
  27. TAFINLAR [Suspect]
     Active Substance: DABRAFENIB MESYLATE
     Dosage: UNK, 1-0-2
     Route: 065
     Dates: start: 20240229, end: 20240305
  28. TAFINLAR [Suspect]
     Active Substance: DABRAFENIB MESYLATE
     Dosage: UNK, 1-0-2
     Route: 065
     Dates: start: 20240308, end: 20240311
  29. TAFINLAR [Suspect]
     Active Substance: DABRAFENIB MESYLATE
     Dosage: UNK, 1-0-2
     Route: 065
     Dates: start: 20240316, end: 20240417
  30. TAFINLAR [Suspect]
     Active Substance: DABRAFENIB MESYLATE
     Dosage: UNK , 1-0-2
     Route: 065
     Dates: start: 20240423, end: 20240428
  31. TAFINLAR [Suspect]
     Active Substance: DABRAFENIB MESYLATE
     Dosage: UNK. 1-0-2
     Route: 065
     Dates: start: 20240502, end: 20240519
  32. TAFINLAR [Suspect]
     Active Substance: DABRAFENIB MESYLATE
     Dosage: UNK 1-0-2
     Route: 065
     Dates: start: 20240526, end: 20240609
  33. TAFINLAR [Suspect]
     Active Substance: DABRAFENIB MESYLATE
     Dosage: UNK, 1-0-2
     Route: 065
     Dates: start: 20240614, end: 20240624
  34. TAFINLAR [Suspect]
     Active Substance: DABRAFENIB MESYLATE
     Dosage: UNK, 1-0-2
     Route: 065
     Dates: start: 20240701, end: 20240724
  35. TAFINLAR [Suspect]
     Active Substance: DABRAFENIB MESYLATE
     Dosage: UNK,1 -0-2
     Route: 065
     Dates: start: 20240731, end: 20240809
  36. TAFINLAR [Suspect]
     Active Substance: DABRAFENIB MESYLATE
     Dosage: UNK, 1-0-2
     Route: 065
     Dates: start: 20240814, end: 20240824
  37. TAFINLAR [Suspect]
     Active Substance: DABRAFENIB MESYLATE
     Dosage: UNK, 1-0-2
     Route: 065
     Dates: start: 20240902, end: 20240912
  38. TAFINLAR [Suspect]
     Active Substance: DABRAFENIB MESYLATE
     Dosage: UNK, 1-0-2
     Route: 065
     Dates: start: 20240930, end: 20241008
  39. TAFINLAR [Suspect]
     Active Substance: DABRAFENIB MESYLATE
     Dosage: UNK, 1-0-2
     Route: 065
     Dates: start: 20240930, end: 20241008
  40. TAFINLAR [Suspect]
     Active Substance: DABRAFENIB MESYLATE
     Dosage: UNK, 1-0-2
     Route: 065
     Dates: start: 20241015, end: 20241108
  41. TAFINLAR [Suspect]
     Active Substance: DABRAFENIB MESYLATE
     Dosage: UNK, 1-0-2
     Route: 065
     Dates: start: 20241114, end: 20241208
  42. TAFINLAR [Suspect]
     Active Substance: DABRAFENIB MESYLATE
     Dosage: UNK, 1-0-2
     Route: 065
     Dates: start: 20241214, end: 20241225
  43. TAFINLAR [Suspect]
     Active Substance: DABRAFENIB MESYLATE
     Dosage: UNK, 1-0-2
     Route: 065
     Dates: start: 20250105, end: 20250206
  44. TAFINLAR [Suspect]
     Active Substance: DABRAFENIB MESYLATE
     Dosage: UNK, 1-0-2
     Route: 065
     Dates: start: 20250213, end: 20250215
  45. TAFINLAR [Suspect]
     Active Substance: DABRAFENIB MESYLATE
     Dosage: UNK, 1-0-2
     Route: 065
     Dates: start: 20250221, end: 202503
  46. TAFINLAR [Suspect]
     Active Substance: DABRAFENIB MESYLATE
     Dosage: UNK, 1-0-2
     Route: 065
     Dates: start: 202503, end: 202503
  47. TAFINLAR [Suspect]
     Active Substance: DABRAFENIB MESYLATE
     Dosage: UNK, 1-0-2
     Route: 065
     Dates: start: 202503, end: 202504
  48. TAFINLAR [Suspect]
     Active Substance: DABRAFENIB MESYLATE
     Dosage: UNK, 1-0-2
     Route: 065
     Dates: start: 202504, end: 202504
  49. TAFINLAR [Suspect]
     Active Substance: DABRAFENIB MESYLATE
     Dosage: UNK, 1-0-2
     Route: 065
     Dates: start: 202504, end: 20250507
  50. TAFINLAR [Suspect]
     Active Substance: DABRAFENIB MESYLATE
     Dosage: UNK, 1-0-2
     Route: 065
     Dates: start: 20250512, end: 20250519
  51. MEKINIST [Suspect]
     Active Substance: TRAMETINIB DIMETHYL SULFOXIDE
     Indication: Malignant melanoma
     Dosage: 2 MG, QD (0-0-1)
     Route: 065
     Dates: start: 20220913, end: 20220925
  52. MEKINIST [Suspect]
     Active Substance: TRAMETINIB DIMETHYL SULFOXIDE
     Indication: Metastases to lung
     Dosage: 2 MG, QD (0-0-1)
     Route: 065
     Dates: start: 20221011, end: 20221027
  53. MEKINIST [Suspect]
     Active Substance: TRAMETINIB DIMETHYL SULFOXIDE
     Dosage: 2 MG, QD (0-0-1)
     Route: 065
     Dates: start: 20221105, end: 20221213
  54. MEKINIST [Suspect]
     Active Substance: TRAMETINIB DIMETHYL SULFOXIDE
     Dosage: 2 MG, QD (0-0-1)
     Route: 065
     Dates: start: 20221228, end: 20230113
  55. MEKINIST [Suspect]
     Active Substance: TRAMETINIB DIMETHYL SULFOXIDE
     Dosage: 1.5 MG, QD (0-0-1)
     Route: 065
     Dates: start: 20230127, end: 20230310
  56. MEKINIST [Suspect]
     Active Substance: TRAMETINIB DIMETHYL SULFOXIDE
     Dosage: 0.5 MG, QD (3X 0.5 MG)
     Route: 065
     Dates: start: 20230321, end: 20230403
  57. MEKINIST [Suspect]
     Active Substance: TRAMETINIB DIMETHYL SULFOXIDE
     Dosage: 0.5 MG, QD (3X 0.5 MG)
     Route: 065
     Dates: start: 20230414, end: 20230424
  58. MEKINIST [Suspect]
     Active Substance: TRAMETINIB DIMETHYL SULFOXIDE
     Dosage: 0.5 MG, QD (3X 0.5 MG)
     Route: 065
     Dates: start: 20230506, end: 20230605
  59. MEKINIST [Suspect]
     Active Substance: TRAMETINIB DIMETHYL SULFOXIDE
     Dosage: 0.5 MG, QD (3X 0.5 MG)
     Route: 065
     Dates: start: 20230613, end: 20230628
  60. MEKINIST [Suspect]
     Active Substance: TRAMETINIB DIMETHYL SULFOXIDE
     Dosage: 0.5 MG, QD (3X 0.5 MG)
     Route: 065
     Dates: start: 20230708, end: 20230719
  61. MEKINIST [Suspect]
     Active Substance: TRAMETINIB DIMETHYL SULFOXIDE
     Dosage: 1.5 MG (IN THE EVENING (0-0-3))
     Route: 065
     Dates: start: 20230321, end: 20230403
  62. MEKINIST [Suspect]
     Active Substance: TRAMETINIB DIMETHYL SULFOXIDE
     Dosage: 1.5 MG (IN THE EVENING (0-0-3))
     Route: 065
     Dates: start: 20230413, end: 20230424
  63. MEKINIST [Suspect]
     Active Substance: TRAMETINIB DIMETHYL SULFOXIDE
     Dosage: 1.5 MG (IN THE EVENING (0-0-3))
     Route: 065
     Dates: start: 20250506, end: 20250605
  64. MEKINIST [Suspect]
     Active Substance: TRAMETINIB DIMETHYL SULFOXIDE
     Dosage: 1.5 MG (IN THE EVENING (0-0-3)
     Route: 065
     Dates: start: 20220613, end: 20230628
  65. MEKINIST [Suspect]
     Active Substance: TRAMETINIB DIMETHYL SULFOXIDE
     Dosage: 1.5 MG (IN THE EVENING (0-0-3)
     Route: 065
     Dates: start: 20230708, end: 20230719
  66. MEKINIST [Suspect]
     Active Substance: TRAMETINIB DIMETHYL SULFOXIDE
     Dosage: 1 MG ,0-0-2
     Route: 065
     Dates: start: 20230730, end: 20230903
  67. MEKINIST [Suspect]
     Active Substance: TRAMETINIB DIMETHYL SULFOXIDE
     Dosage: 1 MG, 0-0-2
     Route: 065
     Dates: start: 20230917, end: 20230928
  68. MEKINIST [Suspect]
     Active Substance: TRAMETINIB DIMETHYL SULFOXIDE
     Dosage: 1 MG, 0-0-2
     Route: 065
     Dates: start: 20231005, end: 20231024
  69. MEKINIST [Suspect]
     Active Substance: TRAMETINIB DIMETHYL SULFOXIDE
     Dosage: 1 MG, 0-0-2
     Route: 065
     Dates: start: 20231030, end: 20231129
  70. MEKINIST [Suspect]
     Active Substance: TRAMETINIB DIMETHYL SULFOXIDE
     Dosage: 1 MG, 0-0-2
     Route: 065
     Dates: start: 20231210, end: 20240124
  71. MEKINIST [Suspect]
     Active Substance: TRAMETINIB DIMETHYL SULFOXIDE
     Dosage: 1 MG, 0-0-2
     Route: 065
     Dates: start: 20240130, end: 20240219
  72. MEKINIST [Suspect]
     Active Substance: TRAMETINIB DIMETHYL SULFOXIDE
     Dosage: 1 MG, 0-0-2
     Route: 065
     Dates: start: 20240229, end: 20240305
  73. MEKINIST [Suspect]
     Active Substance: TRAMETINIB DIMETHYL SULFOXIDE
     Dosage: 1 MG, 0-0-2
     Route: 065
     Dates: start: 20240308, end: 20240311
  74. MEKINIST [Suspect]
     Active Substance: TRAMETINIB DIMETHYL SULFOXIDE
     Dosage: 1 MG, 0-0-2
     Route: 065
     Dates: start: 20240316, end: 20240417
  75. MEKINIST [Suspect]
     Active Substance: TRAMETINIB DIMETHYL SULFOXIDE
     Dosage: 1 MG 0-0-2
     Route: 065
     Dates: start: 20240423, end: 20240428
  76. MEKINIST [Suspect]
     Active Substance: TRAMETINIB DIMETHYL SULFOXIDE
     Dosage: 1 MG, 0-0-2
     Route: 065
     Dates: start: 20240502, end: 20240519
  77. MEKINIST [Suspect]
     Active Substance: TRAMETINIB DIMETHYL SULFOXIDE
     Dosage: 1 MG, 0-0-2
     Route: 065
     Dates: start: 20240526, end: 20240609
  78. MEKINIST [Suspect]
     Active Substance: TRAMETINIB DIMETHYL SULFOXIDE
     Dosage: 1 MG, 0-0-2
     Route: 065
     Dates: start: 20240614, end: 20240624
  79. MEKINIST [Suspect]
     Active Substance: TRAMETINIB DIMETHYL SULFOXIDE
     Dosage: 1 MG, 0-0-2
     Route: 065
     Dates: start: 20240701, end: 20240724
  80. MEKINIST [Suspect]
     Active Substance: TRAMETINIB DIMETHYL SULFOXIDE
     Dosage: 1 MG, 0-0-2
     Route: 065
     Dates: start: 20240731, end: 20240809
  81. MEKINIST [Suspect]
     Active Substance: TRAMETINIB DIMETHYL SULFOXIDE
     Dosage: 1 MG, 0-0-2
     Route: 065
     Dates: start: 20240814, end: 20240824
  82. MEKINIST [Suspect]
     Active Substance: TRAMETINIB DIMETHYL SULFOXIDE
     Dosage: 1 MG, 0-0-2
     Route: 065
     Dates: start: 20240902, end: 20240912
  83. MEKINIST [Suspect]
     Active Substance: TRAMETINIB DIMETHYL SULFOXIDE
     Dosage: 1 MG, 0-0-2
     Route: 065
     Dates: start: 20240930, end: 20241008
  84. MEKINIST [Suspect]
     Active Substance: TRAMETINIB DIMETHYL SULFOXIDE
     Dosage: 1 MG, 0-0-2
     Route: 065
     Dates: start: 20241015, end: 20241108
  85. MEKINIST [Suspect]
     Active Substance: TRAMETINIB DIMETHYL SULFOXIDE
     Dosage: 1 MG, 0-0-2
     Route: 065
     Dates: start: 20241114, end: 20241208
  86. MEKINIST [Suspect]
     Active Substance: TRAMETINIB DIMETHYL SULFOXIDE
     Dosage: 1 MG, 0-0-2
     Route: 065
     Dates: start: 20241214, end: 20241225
  87. MEKINIST [Suspect]
     Active Substance: TRAMETINIB DIMETHYL SULFOXIDE
     Dosage: 1 MG, 0-0-2
     Route: 065
     Dates: start: 20250105, end: 20250206
  88. MEKINIST [Suspect]
     Active Substance: TRAMETINIB DIMETHYL SULFOXIDE
     Dosage: 1 MG, 0-0-2
     Route: 065
     Dates: start: 20250213, end: 20250215
  89. MEKINIST [Suspect]
     Active Substance: TRAMETINIB DIMETHYL SULFOXIDE
     Dosage: 1 MG, 0-0-2
     Route: 065
     Dates: start: 20250221, end: 202503
  90. MEKINIST [Suspect]
     Active Substance: TRAMETINIB DIMETHYL SULFOXIDE
     Dosage: 1 MG, 0-0-2
     Route: 065
     Dates: start: 202503, end: 202503
  91. MEKINIST [Suspect]
     Active Substance: TRAMETINIB DIMETHYL SULFOXIDE
     Dosage: 1 MG, 0-0-2
     Route: 065
     Dates: start: 202503, end: 202504
  92. MEKINIST [Suspect]
     Active Substance: TRAMETINIB DIMETHYL SULFOXIDE
     Dosage: 1 MG, 0-0-2
     Route: 065
     Dates: start: 202504, end: 20250507
  93. MEKINIST [Suspect]
     Active Substance: TRAMETINIB DIMETHYL SULFOXIDE
     Dosage: 1 MG, 0-0-2
     Route: 065
     Dates: start: 20250512, end: 20250519
  94. MEKINIST [Suspect]
     Active Substance: TRAMETINIB DIMETHYL SULFOXIDE
     Dosage: 1 MG, 0-0-2
     Route: 065
     Dates: start: 20250528, end: 20250611
  95. MEKINIST [Suspect]
     Active Substance: TRAMETINIB DIMETHYL SULFOXIDE
     Dosage: 1 MG, 0-0-2
     Route: 065
     Dates: start: 20250620, end: 20250630
  96. MEKINIST [Suspect]
     Active Substance: TRAMETINIB DIMETHYL SULFOXIDE
     Dosage: 1 MG, 0-0-2
     Route: 065
     Dates: start: 20250704, end: 20250706
  97. MEKINIST [Suspect]
     Active Substance: TRAMETINIB DIMETHYL SULFOXIDE
     Dosage: 1 MG, 0-0-2
     Route: 065
     Dates: start: 20250712, end: 20250714
  98. MEKINIST [Suspect]
     Active Substance: TRAMETINIB DIMETHYL SULFOXIDE
     Dosage: 1 MG, 0-0-2
     Route: 065
     Dates: start: 20250717, end: 20250809
  99. MEKINIST [Suspect]
     Active Substance: TRAMETINIB DIMETHYL SULFOXIDE
     Dosage: 1 MG, 0-0-2
     Route: 065
     Dates: start: 20250815, end: 20250824
  100. MEKINIST [Suspect]
     Active Substance: TRAMETINIB DIMETHYL SULFOXIDE
     Dosage: 1 MG, 0-0-2
     Route: 065
     Dates: start: 20250901, end: 20250911
  101. BISOPROLOL [Concomitant]
     Active Substance: BISOPROLOL
     Indication: Hypertension
     Dosage: UNK (0.5-0-0.5)
     Route: 065
     Dates: end: 202304
  102. BISOPROLOL [Concomitant]
     Active Substance: BISOPROLOL
     Dosage: 1.25 MG (2 IN THE MORNING)
     Route: 065
     Dates: start: 202304
  103. BISOPROLOL [Concomitant]
     Active Substance: BISOPROLOL
     Dosage: 1.25 MG (2-0-2)
     Route: 065
     Dates: start: 20230418
  104. BISOPROLOL [Concomitant]
     Active Substance: BISOPROLOL
     Dosage: 1.25 MG (1/2)
     Route: 065
  105. CANDESARTAN [Concomitant]
     Active Substance: CANDESARTAN
     Indication: Hypertension
     Dosage: 8 MG (1-0-1)
     Route: 065
  106. CANDESARTAN [Concomitant]
     Active Substance: CANDESARTAN
     Dosage: UNK (?-0-1)
     Route: 065
  107. TORSEMIDE [Concomitant]
     Active Substance: TORSEMIDE
     Indication: Product used for unknown indication
     Dosage: UNK, PRN (0.5-0-0)
     Route: 065
  108. AMLODIPINE [Concomitant]
     Active Substance: AMLODIPINE BESYLATE
     Indication: Hypertension
     Dosage: UNK (0.5-0-0.5)
     Route: 065
     Dates: end: 20230126
  109. AMLODIPINE [Concomitant]
     Active Substance: AMLODIPINE BESYLATE
     Dosage: UNK, PRN (AS NEEDED)
     Route: 065
     Dates: start: 20230126
  110. AMLODIPINE [Concomitant]
     Active Substance: AMLODIPINE BESYLATE
     Dosage: 2.5 MG (1/2)
     Route: 065
     Dates: end: 202301
  111. AMLODIPINE [Concomitant]
     Active Substance: AMLODIPINE BESYLATE
     Dosage: UNK (1-0-0)
     Route: 065
     Dates: start: 20241213
  112. AMLODIPINE [Concomitant]
     Active Substance: AMLODIPINE BESYLATE
     Dosage: 2.5 MG (1/2-0-1/2 )
     Route: 065
  113. ESOMEPRAZOLE [Concomitant]
     Active Substance: ESOMEPRAZOLE
     Dosage: UNK, QD (0-0-1)
     Route: 065
  114. ESOMEPRAZOLE [Concomitant]
     Active Substance: ESOMEPRAZOLE
     Dosage: 20 MG (1/2-0-1/2 )
     Route: 065
  115. PREGABALIN [Concomitant]
     Active Substance: PREGABALIN
     Indication: Product used for unknown indication
     Dosage: UNK, BID (1-0-1)
     Route: 065
     Dates: start: 20230108
  116. PREGABALIN [Concomitant]
     Active Substance: PREGABALIN
     Indication: Product used for unknown indication
     Dosage: UNK (ONE CAPSULE IN THE EVENING)
     Route: 065
     Dates: start: 202301

REACTIONS (62)
  - Arrhythmia [Recovered/Resolved]
  - Atrial fibrillation [Unknown]
  - Embolism [Unknown]
  - Neuropathy peripheral [Unknown]
  - Cataract [Not Recovered/Not Resolved]
  - Abscess [Unknown]
  - Erythema [Unknown]
  - Influenza like illness [Unknown]
  - Pyrexia [Unknown]
  - Stomatitis [Unknown]
  - Chills [Unknown]
  - Myalgia [Unknown]
  - Rheumatic disorder [Unknown]
  - Hypertension [Unknown]
  - Cervicobrachial syndrome [Unknown]
  - Infection [Unknown]
  - Joint swelling [Unknown]
  - Pain [Unknown]
  - Arthralgia [Unknown]
  - Pain in extremity [Unknown]
  - Product dose omission issue [Recovered/Resolved]
  - Extrasystoles [Unknown]
  - Headache [Unknown]
  - Cough [Unknown]
  - Oropharyngeal pain [Unknown]
  - Pain in extremity [Unknown]
  - Mouth ulceration [Unknown]
  - Hypertension [Unknown]
  - Pain [Unknown]
  - Pulse abnormal [Unknown]
  - Liver function test abnormal [Unknown]
  - Nausea [Unknown]
  - Joint swelling [Unknown]
  - Muscle spasms [Unknown]
  - Fatigue [Unknown]
  - Pustule [Unknown]
  - Oropharyngeal pain [Unknown]
  - Infection [Unknown]
  - Tooth abscess [Unknown]
  - Mucosal inflammation [Unknown]
  - Post-traumatic neck syndrome [Unknown]
  - Neck pain [Unknown]
  - Pulpitis dental [Unknown]
  - Pain in extremity [Not Recovered/Not Resolved]
  - Limb discomfort [Unknown]
  - Hypotension [Unknown]
  - Tinnitus [Unknown]
  - Dizziness [Unknown]
  - Pruritus [Unknown]
  - Stress [Unknown]
  - Umbilical hernia [Unknown]
  - Balanoposthitis [Unknown]
  - Discomfort [Unknown]
  - Balanoposthitis [Unknown]
  - Blood pressure abnormal [Unknown]
  - Low density lipoprotein decreased [Unknown]
  - Alanine aminotransferase abnormal [Unknown]
  - Coronavirus infection [Unknown]
  - Oral pain [Unknown]
  - Asthenia [Unknown]
  - Dental cyst [Unknown]
  - Body temperature increased [Unknown]

NARRATIVE: CASE EVENT DATE: 20220101
